FAERS Safety Report 6182871-4 (Version None)
Quarter: 2009Q2

REPORT INFORMATION
  Report Type: 
  Country: None (occurrence: None)
  Receive Date: 20090507
  Receipt Date: 20090430
  Transmission Date: 20091009
  Serious: Yes (Hospitalization)
  Sender: FDA-Public Use
  Company Number: GB-AVENTIS-200914476GDDC

PATIENT
  Sex: Female

DRUGS (2)
  1. LANTUS [Suspect]
     Route: 058
     Dates: start: 20030401
  2. AUTOPEN INSULIN INJECTION PEN [Suspect]

REACTIONS (4)
  - CONFUSIONAL STATE [None]
  - HOSPITALISATION [None]
  - HYPOGLYCAEMIA [None]
  - TEARFULNESS [None]
